FAERS Safety Report 24789380 (Version 1)
Quarter: 2024Q4

REPORT INFORMATION
  Report Type: Spontaneous
  Country: US (occurrence: US)
  Receive Date: 20241230
  Receipt Date: 20241230
  Transmission Date: 20250115
  Serious: Yes (Other)
  Sender: AMGEN
  Company Number: US-AMGEN-USASP2024252141

PATIENT
  Age: 66 Year
  Sex: Male

DRUGS (1)
  1. PREDNISONE [Suspect]
     Active Substance: PREDNISONE
     Indication: Thyroiditis
     Dosage: 20 MILLIGRAM, BID
     Route: 065

REACTIONS (1)
  - Hyperthyroidism [Not Recovered/Not Resolved]
